FAERS Safety Report 8964436 (Version 1)
Quarter: 2012Q4

REPORT INFORMATION
  Report Type: 
  Country: GB (occurrence: GB)
  Receive Date: 20121214
  Receipt Date: 20121214
  Transmission Date: 20130627
  Serious: Yes (Hospitalization, Other)
  Sender: FDA-Public Use
  Company Number: GB-PFIZER INC-GB8915225FEB2002

PATIENT
  Age: 45 Year
  Sex: Female

DRUGS (3)
  1. IBUPROFEN [Suspect]
     Indication: ARTHRITIS
     Dosage: 1200mg daily
     Route: 048
  2. PAROXETINE [Suspect]
     Dosage: 20 mg daily
     Route: 048
  3. CLOZARIL [Suspect]
     Indication: SCHIZOPHRENIA
     Dosage: 300mg daily
     Route: 048
     Dates: start: 20010925, end: 20011024

REACTIONS (6)
  - Hepatitis [Recovering/Resolving]
  - Diarrhoea [Recovering/Resolving]
  - Hypomania [Recovering/Resolving]
  - Hyperglycaemia [Recovering/Resolving]
  - Dehydration [Recovering/Resolving]
  - Asthenia [Recovering/Resolving]
